FAERS Safety Report 12390314 (Version 4)
Quarter: 2018Q1

REPORT INFORMATION
  Report Type: Report from Study
  Country: US (occurrence: US)
  Receive Date: 20160520
  Receipt Date: 20180320
  Transmission Date: 20180508
  Serious: Yes (Hospitalization, Other)
  Sender: FDA-Public Use
  Company Number: US-AMGEN-USASP2016062936

PATIENT
  Age: 60 Year
  Sex: Male

DRUGS (2)
  1. REPATHA [Suspect]
     Active Substance: EVOLOCUMAB
     Indication: BLOOD CHOLESTEROL INCREASED
     Dosage: 140 MG, Q2WK
     Route: 065
     Dates: start: 20160404, end: 2017
  2. REPATHA [Suspect]
     Active Substance: EVOLOCUMAB
     Indication: HYPERCHOLESTEROLAEMIA
     Dosage: 140 MG, QMO
     Route: 065
     Dates: start: 2017, end: 2017

REACTIONS (18)
  - White blood cell count increased [Unknown]
  - Sinus congestion [Unknown]
  - Feeling abnormal [Unknown]
  - Mouth haemorrhage [Unknown]
  - Pneumonia [Recovering/Resolving]
  - Insomnia [Not Recovered/Not Resolved]
  - Respiratory tract congestion [Unknown]
  - Back pain [Not Recovered/Not Resolved]
  - Spinal pain [Recovered/Resolved]
  - Epistaxis [Unknown]
  - Choking [Unknown]
  - Malaise [Unknown]
  - Influenza [Unknown]
  - Musculoskeletal stiffness [Not Recovered/Not Resolved]
  - Coronary artery occlusion [Unknown]
  - Dyspnoea [Unknown]
  - Drug hypersensitivity [Unknown]
  - Heart rate increased [Unknown]

NARRATIVE: CASE EVENT DATE: 201604
